FAERS Safety Report 12979670 (Version 1)
Quarter: 2016Q4

REPORT INFORMATION
  Report Type: Report from Study
  Country: DE (occurrence: DE)
  Receive Date: 20161128
  Receipt Date: 20161128
  Transmission Date: 20170207
  Serious: Yes (Hospitalization)
  Sender: FDA-Public Use
  Company Number: DE-BIOGEN-2016BI00321625

PATIENT
  Age: 49 Year
  Sex: Female
  Weight: 100 kg

DRUGS (5)
  1. VENLAFAXINE [Concomitant]
     Active Substance: VENLAFAXINE HYDROCHLORIDE
     Indication: DEPRESSED MOOD
     Route: 065
     Dates: start: 2010
  2. METAPROLOL [Concomitant]
     Active Substance: METOPROLOL
     Indication: MIGRAINE PROPHYLAXIS
     Dosage: 47.5
     Route: 065
     Dates: start: 2007
  3. OMEP [Concomitant]
     Active Substance: OMEPRAZOLE
     Indication: PROPHYLAXIS
     Route: 065
     Dates: start: 2010
  4. LEVOTHYROXINE. [Concomitant]
     Active Substance: LEVOTHYROXINE
     Indication: THYROID DISORDER
     Route: 065
     Dates: start: 2010
  5. TECFIDERA [Suspect]
     Active Substance: DIMETHYL FUMARATE
     Indication: MULTIPLE SCLEROSIS
     Dosage: MAINTENANCE DOSE
     Route: 048
     Dates: start: 20140601

REACTIONS (4)
  - Epilepsy [Not Recovered/Not Resolved]
  - Face injury [Recovered/Resolved]
  - Benign uterine neoplasm [Recovered/Resolved]
  - Benign bone neoplasm [Recovered/Resolved]

NARRATIVE: CASE EVENT DATE: 201608
